FAERS Safety Report 4556939-X (Version None)
Quarter: 2005Q1

REPORT INFORMATION
  Report Type: 
  Country: None (occurrence: None)
  Receive Date: 20050118
  Receipt Date: 20050104
  Transmission Date: 20050727
  Serious: Yes (Hospitalization)
  Sender: FDA-Public Use
  Company Number: 211328

PATIENT
  Age: 78 Year
  Sex: 0

DRUGS (2)
  1. MABTHERA           (RITUXIMAB) [Suspect]
     Indication: EXTRANODAL MARGINAL ZONE B-CELL LYMPHOMA (MALT TYPE)
     Dosage: 540 MG, 1/WEEK, INTRAVENOUS
     Route: 042
     Dates: start: 20041121, end: 20041216
  2. CHLORAMBUCIL             (CHLORAMBUCIL) [Suspect]
     Indication: EXTRANODAL MARGINAL ZONE B-CELL LYMPHOMA (MALT TYPE)
     Dosage: SEE IMAGE
     Route: 048
     Dates: start: 20041126, end: 20041220

REACTIONS (4)
  - ASTHENIA [None]
  - DYSSTASIA [None]
  - FEELING ABNORMAL [None]
  - NEUTROPENIC SEPSIS [None]
